FAERS Safety Report 6070494-7 (Version None)
Quarter: 2009Q1

REPORT INFORMATION
  Report Type: 
  Country: None (occurrence: None)
  Receive Date: 20090209
  Receipt Date: 20090129
  Transmission Date: 20090719
  Serious: Yes (Hospitalization)
  Sender: FDA-Public Use
  Company Number: US-MERCK-0805USA00388

PATIENT
  Age: 55 Year
  Sex: Female
  Weight: 71 kg

DRUGS (6)
  1. FOSAMAX [Suspect]
     Indication: MENOPAUSE
     Route: 048
     Dates: start: 19980101, end: 20070101
  2. FOSAMAX [Suspect]
     Route: 048
     Dates: start: 20020311
  3. FOSAMAX [Suspect]
     Indication: OSTEOPENIA
     Route: 048
     Dates: start: 19980101, end: 20070101
  4. FOSAMAX [Suspect]
     Route: 048
     Dates: start: 20020311
  5. GLUCOTROL [Concomitant]
     Indication: DIABETES MELLITUS
     Route: 065
     Dates: start: 19960101
  6. TRAMADOL HYDROCHLORIDE [Concomitant]
     Route: 065

REACTIONS (22)
  - ANGINA UNSTABLE [None]
  - ASTHMA [None]
  - BLOOD CHOLESTEROL INCREASED [None]
  - BONE DISORDER [None]
  - CHEST PAIN [None]
  - HERPES ZOSTER [None]
  - HYPERTENSIVE HEART DISEASE [None]
  - INFLAMMATION [None]
  - LOOSE TOOTH [None]
  - MENISCUS LESION [None]
  - MYOCARDIAL ISCHAEMIA [None]
  - NECK INJURY [None]
  - OSTEOARTHRITIS [None]
  - OSTEOPOROSIS [None]
  - PAIN IN JAW [None]
  - PALPITATIONS [None]
  - RHEUMATOID ARTHRITIS [None]
  - SINUSITIS [None]
  - SWELLING [None]
  - SYNOVITIS [None]
  - TEMPOROMANDIBULAR JOINT SYNDROME [None]
  - TRIGGER FINGER [None]
